FAERS Safety Report 8914107 (Version 4)
Quarter: 2013Q3

REPORT INFORMATION
  Report Type: Spontaneous
  Country: US (occurrence: US)
  Receive Date: 20121119
  Receipt Date: 20130827
  Transmission Date: 20140515
  Serious: Yes (Hospitalization)
  Sender: FDA-Public Use
  Company Number: US-BAYER-2012-117984

PATIENT
  Age: 21 Year
  Sex: Female
  Weight: 59 kg

DRUGS (12)
  1. YAZ [Suspect]
     Indication: CONTRACEPTION
     Dosage: UNK
     Dates: start: 201009, end: 20101030
  2. YAZ [Suspect]
     Indication: MENORRHAGIA
  3. GIANVI [Suspect]
     Indication: CONTRACEPTION
     Dosage: UNK
     Dates: start: 201009, end: 20101030
  4. GIANVI [Suspect]
     Indication: MENORRHAGIA
  5. AMOXICILLIN [Concomitant]
     Route: 048
  6. LEXAPRO [Concomitant]
     Indication: DEPRESSION
     Dosage: UNK
     Route: 048
     Dates: start: 2004
  7. HYDROCODONE [Concomitant]
     Indication: BACK PAIN
     Dosage: UNK
     Route: 048
     Dates: start: 2008, end: 2009
  8. ULTRAM [Concomitant]
     Dosage: 50 MG, EVERY 8 HOURS AS NEEDED
     Route: 048
     Dates: start: 20100727
  9. GABAPENTIN [Concomitant]
     Dosage: 100 MG, TID
     Route: 048
     Dates: start: 20101101
  10. NABUMETONE [Concomitant]
     Dosage: 500 MG, BID
     Route: 048
     Dates: start: 20101101
  11. PERCOCET [Concomitant]
     Dosage: 5/325MG, TEICE DAILY AS NEEDED
     Route: 048
     Dates: start: 20101101
  12. TRAMADOL [Concomitant]
     Dosage: 50 MG, QID
     Route: 048
     Dates: start: 20101101

REACTIONS (5)
  - Cerebrovascular accident [None]
  - Pain [None]
  - Fear of disease [None]
  - Injury [None]
  - Pain [None]
